FAERS Safety Report 4625367-0 (Version None)
Quarter: 2005Q2

REPORT INFORMATION
  Report Type: 
  Country: None (occurrence: None)
  Receive Date: 20050325
  Receipt Date: 20041130
  Transmission Date: 20051028
  Serious: No
  Sender: FDA-Public Use
  Company Number: US_0411108213

PATIENT
  Age: 53 Year
  Sex: Female
  Weight: 66 kg

DRUGS (3)
  1. FORTEO [Suspect]
     Indication: OSTEOPOROSIS
     Dosage: 20 UG/1 DAY
     Dates: start: 20041111
  2. ZOCOR (SIMVASTATIN RATIOPHARM) [Concomitant]
  3. ZOLOFT [Concomitant]

REACTIONS (4)
  - INJECTION SITE ERYTHEMA [None]
  - INJECTION SITE HAEMORRHAGE [None]
  - NASOPHARYNGITIS [None]
  - PHARYNGOLARYNGEAL PAIN [None]
